FAERS Safety Report 12120854 (Version 1)
Quarter: 2016Q1

REPORT INFORMATION
  Report Type: Spontaneous
  Country: US (occurrence: US)
  Receive Date: 20160226
  Receipt Date: 20160226
  Transmission Date: 20160526
  Serious: No
  Sender: FDA-Public Use
  Company Number: US-ALLERGAN-1308942US

PATIENT
  Age: 93 Year
  Sex: Female

DRUGS (4)
  1. BRIMONIDINE [Concomitant]
     Active Substance: BRIMONIDINE TARTRATE
     Indication: GLAUCOMA
     Dosage: UNK
  2. PREDNISOLONE ACETATE, 1.0% [Concomitant]
     Active Substance: PREDNISOLONE ACETATE
     Indication: EYE INFECTION
     Dosage: UNK
  3. REFRESH OPTIVE [Suspect]
     Active Substance: CARBOXYMETHYLCELLULOSE SODIUM\GLYCERIN
     Indication: DRY EYE
     Dosage: 1 GTT, PRN
     Route: 047
  4. COSOPT [Concomitant]
     Active Substance: DORZOLAMIDE HYDROCHLORIDE\TIMOLOL MALEATE
     Indication: GLAUCOMA
     Dosage: UNK

REACTIONS (2)
  - Ocular hyperaemia [Unknown]
  - Eye irritation [Unknown]
